FAERS Safety Report 11682719 (Version 3)
Quarter: 2016Q1

REPORT INFORMATION
  Report Type: Report from Study
  Country: ZA (occurrence: ZA)
  Receive Date: 20151029
  Receipt Date: 20160118
  Transmission Date: 20160525
  Serious: Yes (Death, Hospitalization, Other)
  Sender: FDA-Public Use
  Company Number: ZA-AMGEN-ZAFSL2015112577

PATIENT
  Age: 56 Year
  Sex: Male

DRUGS (16)
  1. FOLIC ACID. [Concomitant]
     Active Substance: FOLIC ACID
     Dosage: 5 MG, UNK
  2. FEDALOC [Concomitant]
     Dosage: 30 MG, UNK
  3. ONE ALPHA [Concomitant]
     Active Substance: ALFACALCIDOL
     Dosage: 0.25 MG, UNK
  4. VITAMIN C [Concomitant]
     Active Substance: ASCORBIC ACID
     Dosage: 500 MG, UNK
  5. PAROXETINE [Concomitant]
     Active Substance: PAROXETINE\PAROXETINE HYDROCHLORIDE
  6. COSMOFER [Concomitant]
     Active Substance: IRON DEXTRAN
  7. PREXUM [Concomitant]
     Active Substance: PERINDOPRIL ERBUMINE
     Dosage: 10 MG, UNK
  8. PHOSPHOSORB [Concomitant]
     Dosage: 660 UNK, UNK
     Route: 048
  9. BAYER ASPIRIN [Concomitant]
     Active Substance: ASPIRIN
  10. PYRIDOXINE [Concomitant]
     Active Substance: PYRIDOXINE
     Dosage: 25 MG, UNK
  11. SERDEP                             /00724402/ [Concomitant]
     Dosage: 50 MG, UNK
  12. VITAMIN B [Concomitant]
     Active Substance: VITAMIN B
     Dosage: UNK UNK, BID
  13. TOPZOLE [Concomitant]
     Dosage: 20 MG, UNK
  14. ARANESP [Suspect]
     Active Substance: DARBEPOETIN ALFA
     Indication: NEPHROGENIC ANAEMIA
     Dosage: 80 MUG, Q2WK
     Route: 058
     Dates: start: 20150501
  15. BISOCOR [Concomitant]
     Active Substance: BISOPROLOL FUMARATE
     Dosage: 10 MG, UNK
  16. PLAGROL [Concomitant]

REACTIONS (1)
  - Cellulitis [Fatal]

NARRATIVE: CASE EVENT DATE: 20150919
